FAERS Safety Report 7196535-1 (Version None)
Quarter: 2010Q4

REPORT INFORMATION
  Report Type: 
  Country: None (occurrence: None)
  Receive Date: 20101223
  Receipt Date: 20101027
  Transmission Date: 20110411
  Serious: No
  Sender: FDA-Public Use
  Company Number: US-AMGEN-KDL442459

PATIENT

DRUGS (6)
  1. ENBREL [Suspect]
     Indication: RHEUMATOID ARTHRITIS
     Dosage: 50 MG, QWK
     Route: 058
     Dates: start: 20100827
  2. ENBREL [Suspect]
     Indication: PSORIATIC ARTHROPATHY
  3. ENBREL [Suspect]
     Indication: PSORIASIS
  4. ZYRTEC [Concomitant]
     Dosage: 5 MG, PRN
     Route: 048
  5. CLONAZEPAM [Concomitant]
     Dosage: 5 MG, UNK
     Route: 048
  6. FLUOCINONIDE [Concomitant]
     Dosage: 0.05 %, BID

REACTIONS (2)
  - FATIGUE [None]
  - INSOMNIA [None]
